FAERS Safety Report 23462586 (Version 2)
Quarter: 2024Q1

REPORT INFORMATION
  Report Type: Spontaneous
  Country: GB (occurrence: GB)
  Receive Date: 20240131
  Receipt Date: 20240219
  Transmission Date: 20240410
  Serious: Yes (Death, Hospitalization)
  Sender: FDA-Public Use
  Company Number: GB-MYLANLABS-2024M1008634

PATIENT
  Sex: Male

DRUGS (1)
  1. CLOZARIL [Suspect]
     Active Substance: CLOZAPINE
     Indication: Schizophrenia
     Dosage: UNK UNK, BID  (50 MG IN MORNING 400 MG IN EVENING)
     Route: 048
     Dates: start: 20210505

REACTIONS (6)
  - Myocardial infarction [Fatal]
  - Hallucination, auditory [Not Recovered/Not Resolved]
  - Hallucination, visual [Recovering/Resolving]
  - Pneumonia aspiration [Unknown]
  - Antipsychotic drug level increased [Unknown]
  - Circulatory collapse [Unknown]
